FAERS Safety Report 10470357 (Version 2)
Quarter: 2014Q4

REPORT INFORMATION
  Report Type: Spontaneous
  Country: US (occurrence: US)
  Receive Date: 20140923
  Receipt Date: 20141028
  Transmission Date: 20150528
  Serious: Yes (Hospitalization)
  Sender: FDA-Public Use
  Company Number: US-BAYER-2014-140744

PATIENT
  Age: 36 Year
  Sex: Female
  Weight: 63.49 kg

DRUGS (8)
  1. VITAMINS NOS [Concomitant]
     Active Substance: VITAMINS
     Dosage: 27-1-300 MG DAILY FOR 30 DAYS
     Route: 048
     Dates: start: 20080429
  2. METHYLDOPA. [Concomitant]
     Active Substance: METHYLDOPA
     Dosage: 500 MG, 2 TIMES PER DAY FOR 30 DAYS
     Route: 048
     Dates: start: 20080429
  3. MIRENA [Suspect]
     Active Substance: LEVONORGESTREL
     Indication: CONTRACEPTION
     Dosage: 20 MCG/24HR, CONT
     Route: 015
     Dates: start: 20080529, end: 20080617
  4. DARVOCET-N 100 [Concomitant]
     Active Substance: ACETAMINOPHEN\PROPOXYPHENE NAPSYLATE
     Indication: PAIN
     Dosage: 100-650 MG EVERY 4-6 HOURS AS NEEDED FOR 7 DAYS
     Route: 048
     Dates: start: 20080429
  5. ALEVE [Concomitant]
     Active Substance: NAPROXEN SODIUM
  6. CLINDESSE [Concomitant]
     Active Substance: CLINDAMYCIN PHOSPHATE
     Dosage: 2 %, UNK
     Route: 067
     Dates: start: 20080429
  7. PROCTOFOAM HC [Concomitant]
     Active Substance: HYDROCORTISONE ACETATE\PRAMOXINE HYDROCHLORIDE
     Dosage: 1-1% 1 APPLICATORFUL 4 TIMES A DAY FOR 7 DAYS
     Route: 054
     Dates: start: 20080429
  8. MACROBID [Concomitant]
     Active Substance: NITROFURANTOIN\NITROFURANTOIN MONOHYDRATE
     Dosage: 100 MG, 2 TIMES A DAY FOR 3 DAYS
     Route: 048

REACTIONS (9)
  - Pyrexia [None]
  - Chills [None]
  - Uterine perforation [None]
  - Influenza like illness [None]
  - Malaise [None]
  - Pain [None]
  - Injury [None]
  - Device related infection [None]
  - Myalgia [None]

NARRATIVE: CASE EVENT DATE: 200806
